FAERS Safety Report 14565330 (Version 1)
Quarter: 2018Q1

REPORT INFORMATION
  Report Type: Spontaneous
  Country: FR (occurrence: FR)
  Receive Date: 20180223
  Receipt Date: 20180223
  Transmission Date: 20180509
  Serious: Yes (Other)
  Sender: FDA-Public Use
  Company Number: FR-AUROBINDO-AUR-APL-2018-008939

PATIENT
  Age: 45 Year
  Sex: Female
  Weight: 62 kg

DRUGS (3)
  1. LAMALINE                           /00764901/ [Suspect]
     Active Substance: ACETAMINOPHEN\BELLADONNA LEAF\CAFFEINE\MORPHINE
     Indication: PAIN
     Dosage: INCONNUE ()
     Route: 048
     Dates: start: 201604, end: 201706
  2. FLUOXETINE [Suspect]
     Active Substance: FLUOXETINE HYDROCHLORIDE
     Indication: MENTAL DISORDER
     Dosage: INCONNUE
     Route: 048
     Dates: start: 201612, end: 201706
  3. VOGALENE [Suspect]
     Active Substance: METOPIMAZINE
     Indication: GASTROINTESTINAL DISORDER
     Dosage: INCONNUE
     Route: 048
     Dates: start: 201604, end: 201706

REACTIONS (1)
  - Hepatocellular injury [Recovered/Resolved]

NARRATIVE: CASE EVENT DATE: 201702
